APPROVED DRUG PRODUCT: DEXMETHYLPHENIDATE HYDROCHLORIDE
Active Ingredient: DEXMETHYLPHENIDATE HYDROCHLORIDE
Strength: 5MG
Dosage Form/Route: TABLET;ORAL
Application: A212631 | Product #002 | TE Code: AB
Applicant: ALKEM LABORATORIES LTD
Approved: Jul 19, 2019 | RLD: No | RS: No | Type: RX